FAERS Safety Report 24981814 (Version 1)
Quarter: 2025Q1

REPORT INFORMATION
  Report Type: Spontaneous
  Country: US (occurrence: None)
  Receive Date: 20250218
  Receipt Date: 20250218
  Transmission Date: 20250409
  Serious: Yes (Other)
  Sender: FDA-CTU
  Company Number: None

PATIENT
  Age: 35 Year
  Sex: Female
  Weight: 104.33 kg

DRUGS (3)
  1. PAROXETINE [Suspect]
     Active Substance: PAROXETINE
  2. BUPROPION [Suspect]
     Active Substance: BUPROPION
  3. ONDANSETRON [Suspect]
     Active Substance: ONDANSETRON

REACTIONS (3)
  - Amniotic cavity infection [None]
  - Funisitis [None]
  - Tachycardia foetal [None]

NARRATIVE: CASE EVENT DATE: 20210510
